FAERS Safety Report 10455245 (Version 2)
Quarter: 2014Q3

REPORT INFORMATION
  Report Type: Spontaneous
  Country: US (occurrence: US)
  Receive Date: 20140916
  Receipt Date: 20140918
  Transmission Date: 20150326
  Serious: Yes (Death, Life-Threatening, Hospitalization)
  Sender: FDA-Public Use
  Company Number: 2014SP005157

PATIENT
  Age: 83 Year
  Sex: Female
  Weight: 54.2 kg

DRUGS (29)
  1. ACYCLOVIR. [Concomitant]
     Active Substance: ACYCLOVIR
     Indication: HERPES VIRUS INFECTION
     Route: 042
  2. ESTROGENS [Concomitant]
     Active Substance: ESTROGENS
     Indication: OSTEOPOROSIS
     Route: 067
  3. NYSTATIN. [Concomitant]
     Active Substance: NYSTATIN
     Route: 048
  4. VANCOMYCIN [Concomitant]
     Active Substance: VANCOMYCIN
     Indication: PYREXIA
     Route: 042
  5. ACETAMINOPHEN. [Concomitant]
     Active Substance: ACETAMINOPHEN
  6. CYTARABINE. [Suspect]
     Active Substance: CYTARABINE
     Indication: ACUTE MYELOID LEUKAEMIA
     Route: 058
     Dates: start: 20140806, end: 20140815
  7. ALLOPURINOL. [Concomitant]
     Active Substance: ALLOPURINOL
     Indication: BLOOD URIC ACID INCREASED
     Route: 048
  8. LEVOTHYROXINE [Concomitant]
     Active Substance: LEVOTHYROXINE
     Route: 048
  9. LIDOCAINE. [Concomitant]
     Active Substance: LIDOCAINE
  10. DIPHENHYDRAMINE /00455701/ [Concomitant]
  11. HYDROMORPHONE [Concomitant]
     Active Substance: HYDROMORPHONE
  12. PROCHLORPERAZINE. [Concomitant]
     Active Substance: PROCHLORPERAZINE
  13. ESOMEPRAZOLE [Concomitant]
     Active Substance: ESOMEPRAZOLE
     Indication: GASTROOESOPHAGEAL REFLUX DISEASE
     Route: 042
  14. LATANOPROST. [Concomitant]
     Active Substance: LATANOPROST
  15. MIRTAZAPINE. [Concomitant]
     Active Substance: MIRTAZAPINE
     Route: 048
  16. ALLOPURINOL. [Concomitant]
     Active Substance: ALLOPURINOL
     Indication: BLOOD URIC ACID INCREASED
     Route: 048
  17. HEPARIN [Concomitant]
     Active Substance: HEPARIN SODIUM
  18. HYDROXYUREA. [Concomitant]
     Active Substance: HYDROXYUREA
     Indication: WHITE BLOOD CELL COUNT INCREASED
     Route: 048
  19. CEFEPIME [Concomitant]
     Active Substance: CEFEPIME\CEFEPIME HYDROCHLORIDE
     Route: 042
  20. IPRATROPIUM [Concomitant]
     Active Substance: IPRATROPIUM
  21. LORAZEPAM. [Concomitant]
     Active Substance: LORAZEPAM
  22. MORPHINE [Concomitant]
     Active Substance: MORPHINE
  23. SCOPOLAMINE /00008702/ [Concomitant]
  24. TIMOLOL [Concomitant]
     Active Substance: TIMOLOL
  25. ALUMINIUM HYDROXIDE [Concomitant]
     Active Substance: ALUMINUM HYDROXIDE
  26. MIDAZOLAM [Concomitant]
     Active Substance: MIDAZOLAM\MIDAZOLAM HYDROCHLORIDE
  27. ALENDRONATE [Concomitant]
     Active Substance: ALENDRONATE SODIUM
     Indication: OSTEOPOROSIS
     Route: 048
  28. SOLIFENACIN [Concomitant]
     Active Substance: SOLIFENACIN
     Indication: ULCER
     Route: 048
  29. CHLORHEXIDINE [Concomitant]
     Active Substance: CHLORHEXIDINE

REACTIONS (8)
  - Epistaxis [Recovered/Resolved]
  - Oedema peripheral [Unknown]
  - Rales [Unknown]
  - Abdominal distension [Unknown]
  - Tachycardia [Unknown]
  - Febrile neutropenia [Not Recovered/Not Resolved]
  - Disseminated intravascular coagulation [Fatal]
  - Hypoxia [Not Recovered/Not Resolved]

NARRATIVE: CASE EVENT DATE: 20140829
